FAERS Safety Report 13661162 (Version 1)
Quarter: 2017Q2

REPORT INFORMATION
  Report Type: Report from Study
  Country: US (occurrence: US)
  Receive Date: 20170616
  Receipt Date: 20170616
  Transmission Date: 20170830
  Serious: No
  Sender: FDA-Public Use
  Company Number: US-US WORLDMEDS, LLC-USW201703-000435

PATIENT
  Age: 77 Year
  Sex: Male

DRUGS (15)
  1. LYRICA [Concomitant]
     Active Substance: PREGABALIN
     Dates: start: 20160802
  2. ENTACAPONE. [Concomitant]
     Active Substance: ENTACAPONE
     Dates: start: 20161012
  3. APOKYN [Suspect]
     Active Substance: APOMORPHINE HYDROCHLORIDE
     Indication: PARKINSON^S DISEASE
     Route: 058
  4. SINEMET [Concomitant]
     Active Substance: CARBIDOPA\LEVODOPA
     Dates: start: 20170102
  5. OMEPRAZOLE. [Concomitant]
     Active Substance: OMEPRAZOLE
     Dates: start: 20160725
  6. MIRTAZAPINE. [Concomitant]
     Active Substance: MIRTAZAPINE
     Dates: start: 20160725
  7. TAMSULOSIN [Concomitant]
     Active Substance: TAMSULOSIN
     Dates: start: 20160725
  8. DONEPEZIL. [Concomitant]
     Active Substance: DONEPEZIL
     Dates: start: 20160725
  9. DULOXETINE. [Concomitant]
     Active Substance: DULOXETINE
     Dates: start: 20160725
  10. COLACE [Concomitant]
     Active Substance: DOCUSATE SODIUM
     Dates: start: 20160725
  11. TYLENOL [Concomitant]
     Active Substance: ACETAMINOPHEN
     Dates: start: 20160914
  12. TRAMADOL. [Concomitant]
     Active Substance: TRAMADOL
     Route: 048
     Dates: start: 20160921
  13. AZILECT [Concomitant]
     Active Substance: RASAGILINE MESYLATE
     Dates: start: 20170109
  14. TIGAN [Concomitant]
     Active Substance: TRIMETHOBENZAMIDE HYDROCHLORIDE
     Dates: start: 20170314
  15. SENNOSIDES. [Concomitant]
     Active Substance: SENNOSIDES
     Dates: start: 20170109

REACTIONS (2)
  - Chest discomfort [Recovered/Resolved]
  - Hyperhidrosis [Recovered/Resolved]

NARRATIVE: CASE EVENT DATE: 20170321
